FAERS Safety Report 14916057 (Version 1)
Quarter: 2018Q2

REPORT INFORMATION
  Report Type: Spontaneous
  Country: US (occurrence: US)
  Receive Date: 20180518
  Receipt Date: 20180518
  Transmission Date: 20180711
  Serious: No
  Sender: FDA-Public Use
  Company Number: US-ROCHE-2046852

PATIENT
  Age: 66 Year
  Sex: Female
  Weight: 81.27 kg

DRUGS (1)
  1. VALCYTE [Suspect]
     Active Substance: VALGANCICLOVIR HYDROCHLORIDE
     Indication: RENAL TRANSPLANT
     Dosage: 6 MONTH TREATMENT
     Route: 065
     Dates: start: 201701, end: 2017

REACTIONS (2)
  - Pain [Not Recovered/Not Resolved]
  - Tendon rupture [Not Recovered/Not Resolved]

NARRATIVE: CASE EVENT DATE: 201710
